FAERS Safety Report 9159504 (Version 1)
Quarter: 2013Q1

REPORT INFORMATION
  Report Type: Spontaneous
  Country: US (occurrence: None)
  Receive Date: 20130312
  Receipt Date: 20130312
  Transmission Date: 20140127
  Serious: Yes (Disabling)
  Sender: FDA-Public Use
  Company Number: None

PATIENT
  Age: 47 Year
  Sex: Male
  Weight: 104.33 kg

DRUGS (2)
  1. ZICAM ALLERGY RELIEF [Suspect]
     Indication: MULTIPLE ALLERGIES
     Dates: start: 20130210, end: 20130303
  2. ZICAM INTENSE SINUS RELIEF [Suspect]
     Indication: MULTIPLE ALLERGIES
     Route: 045
     Dates: start: 20130220, end: 20130303

REACTIONS (1)
  - Anosmia [None]
